FAERS Safety Report 20833764 (Version 1)
Quarter: 2022Q2

REPORT INFORMATION
  Report Type: Spontaneous
  Country: US (occurrence: None)
  Receive Date: 20220513
  Receipt Date: 20220513
  Transmission Date: 20220721
  Serious: Yes (Other)
  Sender: FDA-Public Use
  Company Number: None

PATIENT
  Sex: Female
  Weight: 63 kg

DRUGS (9)
  1. TOPAMAX [Suspect]
     Active Substance: TOPIRAMATE
     Indication: Seizure
     Dosage: FREQUENCY : TWICE A DAY;?
     Route: 048
  2. Vagus Nerve Stimulator [Concomitant]
  3. KEPPRA [Concomitant]
     Active Substance: LEVETIRACETAM
  4. CYMBALTA [Concomitant]
     Active Substance: DULOXETINE HYDROCHLORIDE
  5. MELOXICAM [Concomitant]
     Active Substance: MELOXICAM
  6. MOTEGRITY [Concomitant]
     Active Substance: PRUCALOPRIDE SUCCINATE
  7. ALLEGRA [Concomitant]
     Active Substance: FEXOFENADINE HYDROCHLORIDE
  8. VITAMIN B12 [Concomitant]
     Active Substance: CYANOCOBALAMIN
  9. CALCIUM [Concomitant]
     Active Substance: CALCIUM

REACTIONS (5)
  - Amnesia [None]
  - Aphasia [None]
  - Mental impairment [None]
  - Memory impairment [None]
  - Cognitive disorder [None]
